FAERS Safety Report 6132278-0 (Version None)
Quarter: 2009Q1

REPORT INFORMATION
  Report Type: 
  Country: None (occurrence: None)
  Receive Date: 20090325
  Receipt Date: 20090317
  Transmission Date: 20090719
  Serious: Yes (Hospitalization)
  Sender: FDA-Public Use
  Company Number: JP-NOVOPROD-285375

PATIENT
  Age: 93 Year
  Sex: Female
  Weight: 40 kg

DRUGS (5)
  1. INNOLET 30R CHU [Suspect]
     Indication: TYPE 2 DIABETES MELLITUS
     Dosage: 16 IU, QD
     Route: 058
     Dates: start: 20031222
  2. NORVASC [Concomitant]
     Dosage: 5 MG, UNK
     Route: 048
     Dates: start: 20030422
  3. NU-LOTAN [Concomitant]
     Dosage: 50 MG, UNK
     Route: 048
     Dates: start: 20050301
  4. MEVALOTIN [Concomitant]
     Dosage: 10 MG, UNK
     Route: 048
     Dates: start: 20030422
  5. ASPIRIN [Concomitant]
     Dosage: 100 MG, UNK
     Route: 048
     Dates: start: 20031101

REACTIONS (1)
  - HYPOGLYCAEMIC ENCEPHALOPATHY [None]
